FAERS Safety Report 7360547-5 (Version None)
Quarter: 2011Q1

REPORT INFORMATION
  Report Type: 
  Country: None (occurrence: None)
  Receive Date: 20110318
  Receipt Date: 20110126
  Transmission Date: 20110831
  Serious: Yes (Death, Hospitalization, Other)
  Sender: FDA-Public Use
  Company Number: SG-BAYER-201034531GPV

PATIENT
  Sex: Male
  Weight: 58 kg

DRUGS (21)
  1. SORAFENIB (RAF KINASE INHIBITOR) [Suspect]
     Indication: HEPATIC NEOPLASM MALIGNANT
     Route: 048
     Dates: start: 20100716, end: 20100729
  2. CLEXANE [Concomitant]
     Indication: HEPATIC VEIN THROMBOSIS
     Dosage: 1.2 ML (DAILY DOSE), , SUBCUTANEOUS
     Route: 058
     Dates: start: 20100713, end: 20100802
  3. FRUSEMIDE [Concomitant]
     Indication: HEPATIC VEIN THROMBOSIS
     Dosage: 20 MG (DAILY DOSE), , ORAL
     Route: 048
     Dates: start: 20100530, end: 20100726
  4. FRUSEMIDE [Concomitant]
     Dosage: 40 MG (DAILY DOSE), , ORAL
     Route: 048
     Dates: start: 20100727, end: 20100802
  5. FLUIMUCIL [Concomitant]
     Dosage: 1200 MG (DAILY DOSE), , ORAL
     Route: 048
     Dates: start: 20100915, end: 20101014
  6. FENTANYL [Concomitant]
     Dosage: 6 ?G (DAILY DOSE), , TRANSDERMAL
     Route: 062
     Dates: start: 20100821, end: 20101014
  7. ALDACTONE [Concomitant]
     Dosage: 200 MG (DAILY DOSE), , ORAL
     Route: 048
     Dates: start: 20100727, end: 20100802
  8. SENNA [Concomitant]
     Dosage: 15 MG (DAILY DOSE), , ORAL
     Route: 048
     Dates: start: 20100818, end: 20101014
  9. FAMOTIDINE [Concomitant]
     Indication: ABDOMINAL DISCOMFORT
     Dosage: 20 MG (DAILY DOSE), , ORAL
     Route: 048
     Dates: start: 20100730
  10. MAXOLON [Concomitant]
     Dosage: 30 MG (DAILY DOSE), , ORAL
     Route: 048
     Dates: start: 20100812, end: 20101014
  11. ATARAX [Concomitant]
     Dosage: 30 MG (DAILY DOSE), PRN, ORAL
     Route: 048
     Dates: start: 20100821, end: 20101014
  12. MORPHINE SULFATE [Concomitant]
     Dosage: 15-20MGS
     Route: 048
     Dates: start: 20100823, end: 20101014
  13. ALDACTONE [Concomitant]
     Indication: ASCITES
     Dosage: 75 MG (DAILY DOSE), , ORAL
     Route: 048
     Dates: start: 20100530, end: 20100726
  14. PLACEBO (12917) [Suspect]
     Indication: HEPATIC NEOPLASM MALIGNANT
     Route: 048
     Dates: start: 20100716, end: 20100729
  15. PLACEBO (12917) [Suspect]
     Dosage: 100 MG (DAILY DOSE), QD, ORAL
     Route: 048
     Dates: start: 20100826, end: 20100903
  16. SORAFENIB (RAF KINASE INHIBITOR) [Suspect]
     Route: 048
     Dates: start: 20100826, end: 20100903
  17. ACETAMINOPHEN [Concomitant]
     Dosage: 1 G (DAILY DOSE), , ORAL
     Route: 048
     Dates: start: 20100730, end: 20100730
  18. ALBUMIN (HUMAN) [Concomitant]
     Indication: BLOOD ALBUMIN DECREASED
     Dosage: 50 ML (DAILY DOSE), , INTRAVENOUS
     Route: 042
     Dates: start: 20100803, end: 20101005
  19. LAMIVUDINE [Concomitant]
     Indication: HEPATITIS
     Dosage: 100 MG (DAILY DOSE), , ORAL
     Route: 048
     Dates: start: 20100702, end: 20101014
  20. ALDACTONE [Concomitant]
     Dosage: 200 MG (DAILY DOSE), , ORAL
     Route: 048
     Dates: start: 20100804
  21. TETRACYCLIN [Concomitant]
     Route: 061
     Dates: start: 20100811, end: 20101014

REACTIONS (5)
  - ASCITES [None]
  - LETHARGY [None]
  - DYSPNOEA [None]
  - HEPATIC CIRRHOSIS [None]
  - RENAL FAILURE ACUTE [None]
